FAERS Safety Report 6020540-1 (Version None)
Quarter: 2008Q4

REPORT INFORMATION
  Report Type: 
  Country: None (occurrence: None)
  Receive Date: 20081226
  Receipt Date: 20081216
  Transmission Date: 20090506
  Serious: Yes (Other)
  Sender: FDA-Public Use
  Company Number: FR-ABBOTT-08P-056-0494127-00

PATIENT

DRUGS (3)
  1. CYCLOSPORINE [Suspect]
     Indication: NEPHROTIC SYNDROME
  2. CYCLOSPORINE [Suspect]
     Dosage: ADJUSTED TO MAINTAIN CYA LEVELS BETWEEN 100-150 NG/ML
  3. PREDNISONE TAB [Concomitant]
     Indication: NEPHROTIC SYNDROME
     Dosage: 60 MG/M**2/DAY

REACTIONS (1)
  - RENAL FAILURE ACUTE [None]
